FAERS Safety Report 10022332 (Version 1)
Quarter: 2014Q1

REPORT INFORMATION
  Report Type: Spontaneous
  Country: US (occurrence: None)
  Receive Date: 20140318
  Receipt Date: 20140318
  Transmission Date: 20141002
  Serious: Yes (Other)
  Sender: FDA-Public Use
  Company Number: None

PATIENT
  Age: 70 Year
  Sex: Female
  Weight: 61.24 kg

DRUGS (1)
  1. ATORVASTATIN [Suspect]
     Indication: BLOOD CHOLESTEROL INCREASED
     Dosage: DAY MOUTH
     Dates: start: 20120926, end: 20121128

REACTIONS (6)
  - Cardiac fibrillation [None]
  - Dizziness [None]
  - Dyspnoea [None]
  - Fatigue [None]
  - Nasal congestion [None]
  - Vision blurred [None]
